FAERS Safety Report 4492866-4 (Version None)
Quarter: 2004Q4

REPORT INFORMATION
  Report Type: 
  Country: None (occurrence: None)
  Receive Date: 20041102
  Receipt Date: 20041102
  Transmission Date: 20050328
  Serious: No
  Sender: FDA-Public Use
  Company Number: None

PATIENT
  Age: 44 Year
  Sex: Female

DRUGS (5)
  1. VALPROIC ACID [Suspect]
     Dosage: 500 MG QAM ,  500MG QHS ORAL
     Route: 048
  2. . [Concomitant]
  3. AMLODIPINE [Concomitant]
  4. QUETIAPINE [Concomitant]
  5. BENZTROPINE MESYLATE [Concomitant]

REACTIONS (1)
  - ABDOMINAL DISCOMFORT [None]
